FAERS Safety Report 4823897-X (Version None)
Quarter: 2005Q4

REPORT INFORMATION
  Report Type: 
  Country: None (occurrence: None)
  Receive Date: 20051107
  Receipt Date: 20051025
  Transmission Date: 20060501
  Serious: Yes (Hospitalization, Other)
  Sender: FDA-Public Use
  Company Number: 2005099762

PATIENT
  Sex: Male
  Weight: 92.9874 kg

DRUGS (3)
  1. VIAGRA [Suspect]
     Indication: ERECTILE DYSFUNCTION
     Dosage: AS NECESSARY
     Dates: end: 20050913
  2. LEVITRA [Suspect]
     Indication: ERECTILE DYSFUNCTION
  3. ACETYLSALICYLIC ACID SRT [Concomitant]

REACTIONS (8)
  - ANXIETY [None]
  - BLINDNESS TRANSIENT [None]
  - BLINDNESS UNILATERAL [None]
  - CHEST PAIN [None]
  - DIZZINESS [None]
  - DYSPNOEA [None]
  - HEADACHE [None]
  - TRANSIENT ISCHAEMIC ATTACK [None]
